FAERS Safety Report 6257874-1 (Version None)
Quarter: 2009Q3

REPORT INFORMATION
  Report Type: 
  Country: None (occurrence: None)
  Receive Date: 20090702
  Receipt Date: 20090622
  Transmission Date: 20100115
  Serious: Yes (Other)
  Sender: FDA-Public Use
  Company Number: 1-18905453

PATIENT
  Age: 10 Year
  Sex: Male

DRUGS (1)
  1. PREDNISONE [Suspect]
     Indication: DUCHENNE MUSCULAR DYSTROPHY
     Dosage: 0.75 MG/KG X 10 DAYS, ORAL
     Route: 048

REACTIONS (5)
  - ABASIA [None]
  - BLOOD PRESSURE DIASTOLIC INCREASED [None]
  - BLOOD PRESSURE SYSTOLIC INCREASED [None]
  - CARDIOMYOPATHY [None]
  - EJECTION FRACTION DECREASED [None]
